FAERS Safety Report 5048977-8 (Version None)
Quarter: 2006Q3

REPORT INFORMATION
  Report Type: 
  Country: None (occurrence: None)
  Receive Date: 20060712
  Receipt Date: 20051028
  Transmission Date: 20061208
  Serious: No
  Sender: FDA-Public Use
  Company Number: US-GLAXOSMITHKLINE-A0580107A

PATIENT
  Sex: Female

DRUGS (13)
  1. IMITREX [Suspect]
     Indication: MIGRAINE
     Dosage: 50MG AS REQUIRED
     Route: 048
     Dates: start: 20051025
  2. REQUIP [Suspect]
     Indication: RESTLESS LEGS SYNDROME
     Dosage: 1MG PER DAY
     Route: 048
     Dates: start: 20050901, end: 20051023
  3. REQUIP [Concomitant]
  4. VICODIN [Concomitant]
  5. FENTANYL [Concomitant]
  6. PREVACID [Concomitant]
  7. PAXIL [Concomitant]
  8. LOPRESSOR [Concomitant]
  9. BACLOFEN [Concomitant]
  10. NORCO [Concomitant]
  11. CELEBREX [Concomitant]
  12. TRAZODONE HCL [Concomitant]
  13. NEURONTIN [Concomitant]

REACTIONS (7)
  - BLOOD PRESSURE DECREASED [None]
  - DIZZINESS [None]
  - DRUG ADMINISTRATION ERROR [None]
  - PYREXIA [None]
  - SKIN NODULE [None]
  - SOMNOLENCE [None]
  - SWELLING FACE [None]
